FAERS Safety Report 9463792 (Version 4)
Quarter: 2014Q1

REPORT INFORMATION
  Report Type: Spontaneous
  Country: PT (occurrence: PT)
  Receive Date: 20130819
  Receipt Date: 20140122
  Transmission Date: 20141002
  Serious: Yes (Death, Other)
  Sender: FDA-Public Use
  Company Number: PT-ASTELLAS-2013US008672

PATIENT
  Age: 52 Year
  Sex: Male

DRUGS (9)
  1. TARCEVA [Suspect]
     Indication: LUNG ADENOCARCINOMA STAGE IV
     Dosage: 150 MG, UID/QD
     Route: 048
     Dates: start: 20130215, end: 20130716
  2. RANITIDINE [Concomitant]
     Indication: PRODUCT USED FOR UNKNOWN INDICATION
     Dosage: UNK
     Route: 065
  3. DEXAMETHASONE [Concomitant]
     Indication: PRODUCT USED FOR UNKNOWN INDICATION
     Dosage: UNK
     Route: 065
  4. LEVETIRACETAM [Concomitant]
     Indication: PRODUCT USED FOR UNKNOWN INDICATION
     Dosage: 250 DF, BID
     Route: 065
  5. LEVETIRACETAM [Concomitant]
     Dosage: 1500 DF, BID
     Route: 065
     Dates: start: 20130730
  6. HYDANTIN                           /00017401/ [Concomitant]
     Indication: PRODUCT USED FOR UNKNOWN INDICATION
     Dosage: UNK
     Route: 065
  7. DAFLON                             /01026201/ [Concomitant]
     Indication: PRODUCT USED FOR UNKNOWN INDICATION
     Dosage: UNK
     Route: 065
  8. ATARAX                             /00058401/ [Concomitant]
     Indication: PRODUCT USED FOR UNKNOWN INDICATION
     Dosage: UNK
     Route: 065
  9. SYMBICORT [Concomitant]
     Indication: PRODUCT USED FOR UNKNOWN INDICATION
     Dosage: UNK
     Route: 065

REACTIONS (9)
  - Muscle contractions involuntary [Recovering/Resolving]
  - Respiratory failure [Fatal]
  - Hepatic steatosis [Recovering/Resolving]
  - Malignant neoplasm progression [Fatal]
  - Metastases to central nervous system [Unknown]
  - Deep vein thrombosis [Recovered/Resolved]
  - Metastases to liver [Recovering/Resolving]
  - Gamma-glutamyltransferase increased [Not Recovered/Not Resolved]
  - Alanine aminotransferase increased [Recovering/Resolving]
